FAERS Safety Report 5129846-1 (Version None)
Quarter: 2006Q4

REPORT INFORMATION
  Report Type: 
  Country: None (occurrence: None)
  Receive Date: 20061018
  Receipt Date: 20060927
  Transmission Date: 20070319
  Serious: Yes (Hospitalization, Other)
  Sender: FDA-Public Use
  Company Number: PHBS2006JP15233

PATIENT
  Age: 54 Year
  Sex: Male

DRUGS (4)
  1. GLEEVEC [Suspect]
     Indication: CHRONIC MYELOID LEUKAEMIA
     Dosage: 100 MG/D
     Route: 048
     Dates: start: 20050101, end: 20050101
  2. GLEEVEC [Suspect]
     Dosage: 400 MG/D
     Route: 048
     Dates: start: 20051121, end: 20051204
  3. GLEEVEC [Suspect]
     Dosage: 600 MG/D
     Route: 048
     Dates: start: 20051205
  4. NEUPOGEN [Concomitant]

REACTIONS (13)
  - ANORECTAL DISORDER [None]
  - BLADDER DISORDER [None]
  - BLAST CRISIS IN MYELOGENOUS LEUKAEMIA [None]
  - C-REACTIVE PROTEIN INCREASED [None]
  - CENTRAL NERVOUS SYSTEM LEUKAEMIA [None]
  - CSF PROTEIN INCREASED [None]
  - HAEMOGLOBIN DECREASED [None]
  - HYPOAESTHESIA [None]
  - INFECTION [None]
  - LYMPHOCYTE PERCENTAGE INCREASED [None]
  - MONOPLEGIA [None]
  - PLATELET COUNT DECREASED [None]
  - WHITE BLOOD CELL COUNT DECREASED [None]
